FAERS Safety Report 5220318-2 (Version None)
Quarter: 2006Q4

REPORT INFORMATION
  Report Type: 
  Country: None (occurrence: None)
  Receive Date: 20061201
  Receipt Date: 20060713
  Transmission Date: 20070319
  Serious: No
  Sender: FDA-Public Use
  Company Number: 2006PV017409

PATIENT
  Age: 65 Year
  Sex: Female
  Weight: 121.564 kg

DRUGS (8)
  1. BYETTA [Suspect]
     Indication: DIABETES MELLITUS NON-INSULIN-DEPENDENT
     Dosage: 10 MCG; BID; SC, 5 MCG; BID; SC, BID; SC, 10 MCG; BID; SC
     Route: 058
     Dates: start: 20060616, end: 20060601
  2. BYETTA [Suspect]
     Indication: DIABETES MELLITUS NON-INSULIN-DEPENDENT
     Dosage: 10 MCG; BID; SC, 5 MCG; BID; SC, BID; SC, 10 MCG; BID; SC
     Route: 058
     Dates: start: 20060616, end: 20060712
  3. BYETTA [Suspect]
     Indication: DIABETES MELLITUS NON-INSULIN-DEPENDENT
     Dosage: 10 MCG; BID; SC, 5 MCG; BID; SC, BID; SC, 10 MCG; BID; SC
     Route: 058
     Dates: start: 20060601
  4. BYETTA [Suspect]
     Indication: DIABETES MELLITUS NON-INSULIN-DEPENDENT
     Dosage: 10 MCG; BID; SC, 5 MCG; BID; SC, BID; SC, 10 MCG; BID; SC
     Route: 058
     Dates: start: 20060713
  5. FORTAMET [Concomitant]
  6. AMARYL [Concomitant]
  7. ACTOS /USA/ [Concomitant]
  8. ACTOS /USA/ [Concomitant]

REACTIONS (9)
  - DECREASED APPETITE [None]
  - DRUG INEFFECTIVE FOR UNAPPROVED INDICATION [None]
  - ENERGY INCREASED [None]
  - FEELING JITTERY [None]
  - INCREASED APPETITE [None]
  - INJECTION SITE PAIN [None]
  - NAUSEA [None]
  - NERVOUSNESS [None]
  - SWELLING [None]
